FAERS Safety Report 20561810 (Version 1)
Quarter: 2022Q1

REPORT INFORMATION
  Report Type: Spontaneous
  Country: US (occurrence: None)
  Receive Date: 20220306
  Receipt Date: 20220306
  Transmission Date: 20220424
  Serious: No
  Sender: FDA-Public Use
  Company Number: None

PATIENT
  Age: 55 Year
  Sex: Female
  Weight: 94.5 kg

DRUGS (6)
  1. ESTRADIOL TRANSDERMAL SYSTEM [Suspect]
     Active Substance: ESTRADIOL
     Indication: Menopausal symptoms
     Dosage: OTHER QUANTITY : 8 PATCH(ES);?OTHER FREQUENCY : TWICE WEEKLY;?
     Route: 062
  2. SYNTHROID [Concomitant]
  3. LIOTHYRONINE [Concomitant]
     Active Substance: LIOTHYRONINE
  4. ESTRADIOL [Concomitant]
  5. FEXOFENADINE [Concomitant]
  6. MONTELUKAST [Concomitant]

REACTIONS (7)
  - Menopausal symptoms [None]
  - Symptom recurrence [None]
  - Product adhesion issue [None]
  - Application site reaction [None]
  - Urticaria [None]
  - Product physical issue [None]
  - Product quality issue [None]
